FAERS Safety Report 14603706 (Version 1)
Quarter: 2018Q1

REPORT INFORMATION
  Report Type: Spontaneous
  Country: US (occurrence: US)
  Receive Date: 20180306
  Receipt Date: 20180306
  Transmission Date: 20180509
  Serious: Yes (Other)
  Sender: FDA-Public Use
  Company Number: US-JNJFOC-20180237056

PATIENT
  Sex: Male
  Weight: 96.16 kg

DRUGS (2)
  1. VYVANSE [Concomitant]
     Active Substance: LISDEXAMFETAMINE DIMESYLATE
     Indication: ATTENTION DEFICIT/HYPERACTIVITY DISORDER
     Route: 065
  2. RISPERDAL [Suspect]
     Active Substance: RISPERIDONE
     Indication: AUTISM SPECTRUM DISORDER
     Dosage: AN UNSPECIFIED ^LOW DOSE^
     Route: 048
     Dates: start: 2008, end: 2014

REACTIONS (10)
  - Drug ineffective [Unknown]
  - Abnormal behaviour [Unknown]
  - Glucose tolerance impaired [Not Recovered/Not Resolved]
  - Gynaecomastia [Not Recovered/Not Resolved]
  - Obesity [Unknown]
  - Hospitalisation [Unknown]
  - Eating disorder [Not Recovered/Not Resolved]
  - Product use issue [Unknown]
  - Suicide attempt [Unknown]
  - Off label use [Unknown]

NARRATIVE: CASE EVENT DATE: 2008
